FAERS Safety Report 19460909 (Version 1)
Quarter: 2021Q2

REPORT INFORMATION
  Report Type: Spontaneous
  Country: US (occurrence: US)
  Receive Date: 20210625
  Receipt Date: 20210625
  Transmission Date: 20210717
  Serious: No
  Sender: FDA-Public Use
  Company Number: US-HIKMA PHARMACEUTICALS USA INC.-US-H14001-20-05741

PATIENT

DRUGS (3)
  1. TRIAZOLAM. [Suspect]
     Active Substance: TRIAZOLAM
     Route: 065
  2. TRIAZOLAM. [Suspect]
     Active Substance: TRIAZOLAM
     Indication: PRODUCT USED FOR UNKNOWN INDICATION
     Dosage: UNKNOWN
     Route: 065
  3. TRIAZOLAM. [Suspect]
     Active Substance: TRIAZOLAM
     Route: 065

REACTIONS (2)
  - Drug hypersensitivity [Unknown]
  - Pruritus [Unknown]
